FAERS Safety Report 25456574 (Version 1)
Quarter: 2025Q2

REPORT INFORMATION
  Report Type: Spontaneous
  Country: CN (occurrence: CN)
  Receive Date: 20250619
  Receipt Date: 20250619
  Transmission Date: 20250716
  Serious: Yes (Other)
  Sender: SANDOZ
  Company Number: CN-002147023-NVSC2024CN156927

PATIENT

DRUGS (1)
  1. PREDNISOLONE [Suspect]
     Active Substance: PREDNISOLONE
     Indication: Glaucomatocyclitic crises
     Dosage: UNK, TID
     Route: 065

REACTIONS (3)
  - Ocular hypertension [Unknown]
  - Steroid dependence [Unknown]
  - Product use in unapproved indication [Unknown]
